FAERS Safety Report 25502227 (Version 1)
Quarter: 2025Q3

REPORT INFORMATION
  Report Type: Spontaneous
  Country: AU (occurrence: AU)
  Receive Date: 20250702
  Receipt Date: 20250702
  Transmission Date: 20251021
  Serious: Yes (Other)
  Sender: BRISTOL-MYERS SQUIBB COMPANY
  Company Number: AU-BRISTOL-MYERS SQUIBB COMPANY-2025-092472

PATIENT
  Age: 91 Year
  Sex: Female
  Weight: 50 kg

DRUGS (10)
  1. ELIQUIS [Suspect]
     Active Substance: APIXABAN
     Indication: Arrhythmia
     Dosage: TWICE DAY 8 AM AND 7:30 PM
  2. PERINDOPRIL [Concomitant]
     Active Substance: PERINDOPRIL
     Indication: Blood pressure abnormal
  3. VERAPAMIL HYDROCHLORIDE [Concomitant]
     Active Substance: VERAPAMIL HYDROCHLORIDE
     Indication: Product used for unknown indication
  4. ZOCOR [Concomitant]
     Active Substance: SIMVASTATIN
     Indication: Product used for unknown indication
  5. ANASTROZOLE [Concomitant]
     Active Substance: ANASTROZOLE
     Indication: Breast cancer
  6. DIAZEPAM [Concomitant]
     Active Substance: DIAZEPAM
     Indication: Muscle relaxant therapy
     Dosage: HALF TAB A NIGHT
  7. ACETAMINOPHEN [Concomitant]
     Active Substance: ACETAMINOPHEN
     Indication: Product used for unknown indication
  8. PANTOPRAZOLE [Concomitant]
     Active Substance: PANTOPRAZOLE
     Indication: Product used for unknown indication
     Dosage: IN THE MORNING
  9. VITAMIN B12 [Concomitant]
     Active Substance: CYANOCOBALAMIN
     Indication: Product used for unknown indication
  10. AREDIA [Concomitant]
     Active Substance: PAMIDRONATE DISODIUM
     Indication: Bone cancer
     Dosage: 4 WEEKLY INFUSION

REACTIONS (3)
  - Squamous cell carcinoma [Unknown]
  - Basal cell carcinoma [Unknown]
  - Off label use [Unknown]
